FAERS Safety Report 22074511 (Version 1)
Quarter: 2023Q1

REPORT INFORMATION
  Report Type: Spontaneous
  Country: US (occurrence: None)
  Receive Date: 20230308
  Receipt Date: 20230308
  Transmission Date: 20230418
  Serious: No
  Sender: FDA-Public Use
  Company Number: None

PATIENT

DRUGS (1)
  1. JEVTANA [Suspect]
     Active Substance: CABAZITAXEL

REACTIONS (4)
  - Product label confusion [None]
  - Product reconstitution quality issue [None]
  - Manufacturing process control procedure issue [None]
  - Circumstance or information capable of leading to medication error [None]
